FAERS Safety Report 6787475-8 (Version None)
Quarter: 2010Q2

REPORT INFORMATION
  Report Type: 
  Country: None (occurrence: None)
  Receive Date: 20100621
  Receipt Date: 20100607
  Transmission Date: 20101027
  Serious: Yes (Death)
  Sender: FDA-Public Use
  Company Number: APP201000521

PATIENT
  Age: 63 Year
  Sex: Female

DRUGS (5)
  1. DOXORUBICIN HCL [Suspect]
     Indication: NON-HODGKIN'S LYMPHOMA
  2. RITUXIMAB (RITUXIMAB) [Suspect]
     Indication: LYMPHOMA
  3. CYCLOPHOSPHAMIDE [Suspect]
     Indication: LYMPHOMA
  4. VINCRISTINE [Suspect]
     Indication: LYMPHOMA
  5. PREDNISOLONE [Suspect]
     Indication: LYMPHOMA

REACTIONS (26)
  - ARTHRALGIA [None]
  - ASPIRATION JOINT ABNORMAL [None]
  - BLOOD CREATININE INCREASED [None]
  - CHOLELITHIASIS [None]
  - CONTRAST MEDIA REACTION [None]
  - DERMATITIS BULLOUS [None]
  - DIAPHRAGMATIC DISORDER [None]
  - ECCHYMOSIS [None]
  - ECTHYMA [None]
  - GENERAL PHYSICAL HEALTH DETERIORATION [None]
  - HAEMODIALYSIS [None]
  - INFARCTION [None]
  - INTESTINAL INFARCTION [None]
  - JOINT SWELLING [None]
  - LYMPHADENOPATHY [None]
  - MUCORMYCOSIS [None]
  - MYOCARDIAL INFARCTION [None]
  - MYOCARDIAL ISCHAEMIA [None]
  - NEPHROPATHY [None]
  - NEUTROPENIA [None]
  - PLATELET COUNT DECREASED [None]
  - PSEUDOMONAS INFECTION [None]
  - PULMONARY INFARCTION [None]
  - RENAL INFARCT [None]
  - SKIN DISORDER [None]
  - SPLENIC INFARCTION [None]
